FAERS Safety Report 5546799-2 (Version None)
Quarter: 2007Q4

REPORT INFORMATION
  Report Type: 
  Country: None (occurrence: None)
  Receive Date: 20071211
  Receipt Date: 20071204
  Transmission Date: 20080405
  Serious: Yes (Life-Threatening, Hospitalization, Other)
  Sender: FDA-Public Use
  Company Number: US-BRISTOL-MYERS SQUIBB COMPANY-13990783

PATIENT
  Age: 57 Year
  Sex: Female

DRUGS (13)
  1. ORENCIA [Suspect]
     Indication: RHEUMATOID ARTHRITIS
     Dates: start: 20070928, end: 20070928
  2. METHOTREXATE [Concomitant]
  3. PREDNISONE [Concomitant]
     Dosage: PREDNISONE 1MG TAB TAKE 2TAB DAILY 28-SEP-2007
     Dates: start: 20060926
  4. ABATACEPT [Concomitant]
     Dosage: 3 VIAL EVERY MONTH-REINDUCTIONS AFTER SURGERY
     Dates: start: 20060305
  5. ACYCLOVIR [Concomitant]
     Dosage: TAKE 1 CAP AS DIRECTED 5 TIMES A DAY DURING OUTBREAKS
     Dates: start: 20070828
  6. AMBIEN [Concomitant]
     Dosage: 1 TAB DAILY AT BEDTIME
     Dates: start: 20060926
  7. FOLIC ACID [Concomitant]
     Dates: start: 20051213
  8. FOSAMAX [Concomitant]
     Dates: start: 20051213
  9. HYDROCODONE BITARTRATE AND ACETAMINOPHEN [Concomitant]
     Indication: PAIN
     Dosage: 1TAB 3 TIMES DAILY.5-500MG TAB
     Dates: start: 20050713
  10. METHOTREXATE SODIUM [Concomitant]
     Route: 058
     Dates: start: 20051213
  11. NABUMETONE [Concomitant]
     Dates: start: 20050809
  12. NEXIUM [Concomitant]
     Dates: start: 20070126
  13. VENLAFAXINE HCL [Concomitant]
     Dates: start: 20060906

REACTIONS (6)
  - CEREBRAL HAEMORRHAGE [None]
  - HERPES ZOSTER [None]
  - HYPERTENSIVE CRISIS [None]
  - HYPERTENSIVE ENCEPHALOPATHY [None]
  - MUSCULOSKELETAL PAIN [None]
  - PERIARTHRITIS [None]
